FAERS Safety Report 25921843 (Version 1)
Quarter: 2025Q4

REPORT INFORMATION
  Report Type: Spontaneous
  Country: US (occurrence: US)
  Receive Date: 20251015
  Receipt Date: 20251015
  Transmission Date: 20260118
  Serious: Yes (Hospitalization)
  Sender: ROCHE
  Company Number: US-ROCHE-10000408766

PATIENT
  Sex: Female

DRUGS (2)
  1. XOLAIR PFS [Suspect]
     Active Substance: OMALIZUMAB
     Indication: Dermatitis atopic
     Dosage: STRENGTH:150MG/ML
     Route: 058
     Dates: start: 202307
  2. XOLAIR PFS [Suspect]
     Active Substance: OMALIZUMAB

REACTIONS (7)
  - Off label use [Unknown]
  - Dermatitis atopic [Unknown]
  - Fall [Unknown]
  - Vomiting [Unknown]
  - Pneumonia [Unknown]
  - Spinal fracture [Unknown]
  - COVID-19 [Unknown]
